FAERS Safety Report 4364114-7 (Version None)
Quarter: 2004Q2

REPORT INFORMATION
  Report Type: 
  Country: None (occurrence: None)
  Receive Date: 20040519
  Receipt Date: 20040507
  Transmission Date: 20050107
  Serious: Yes (Death)
  Sender: FDA-Public Use
  Company Number: 163-20785-04040256

PATIENT
  Age: 46 Year
  Sex: Male

DRUGS (1)
  1. THALOMID [Suspect]
     Indication: SPINDLE CELL SARCOMA
     Dosage: 200 MG DAILY, ORAL
     Route: 048
     Dates: start: 20021219, end: 20030224

REACTIONS (2)
  - LUNG NEOPLASM [None]
  - UNDIFFERENTIATED SARCOMA [None]
